FAERS Safety Report 8306585-7 (Version None)
Quarter: 2012Q2

REPORT INFORMATION
  Report Type: 
  Country: None (occurrence: None)
  Receive Date: 20120424
  Receipt Date: 20120417
  Transmission Date: 20120825
  Serious: Yes (Other)
  Sender: FDA-Public Use
  Company Number: US-BAYER-2011-074143

PATIENT
  Age: 33 Year
  Sex: Female
  Weight: 79.365 kg

DRUGS (4)
  1. CILOXAN [Concomitant]
  2. MIRENA [Suspect]
     Indication: CONTRACEPTION
     Dosage: DAILY DOSE 20 ?G
     Route: 015
     Dates: start: 20100622, end: 20110812
  3. DIFLUCAN [Concomitant]
     Dosage: UNK MG, UNK
  4. CLARITIN [Concomitant]
     Dosage: UNK UNK, QD

REACTIONS (8)
  - VOMITING [None]
  - VAGINAL HAEMORRHAGE [None]
  - AMENORRHOEA [None]
  - ECTOPIC PREGNANCY [None]
  - PYREXIA [None]
  - NAUSEA [None]
  - ABDOMINAL PAIN LOWER [None]
  - ABORTION SPONTANEOUS [None]
